FAERS Safety Report 9058160 (Version 1)
Quarter: 2013Q1

REPORT INFORMATION
  Report Type: Spontaneous
  Country: US (occurrence: None)
  Receive Date: 20130204
  Receipt Date: 20130204
  Transmission Date: 20140127
  Serious: Yes (Other)
  Sender: FDA-Public Use
  Company Number: None

PATIENT
  Age: 48 Year
  Sex: Female
  Weight: 91.63 kg

DRUGS (2)
  1. ESCITALOPRAM [Suspect]
     Indication: ANXIETY
     Route: 048
  2. ESCITALOPRAM [Suspect]
     Indication: DEPRESSION
     Route: 048

REACTIONS (3)
  - Anxiety [None]
  - Decreased appetite [None]
  - Panic attack [None]
